FAERS Safety Report 6595477-X (Version None)
Quarter: 2010Q1

REPORT INFORMATION
  Report Type: 
  Country: None (occurrence: None)
  Receive Date: 20100222
  Receipt Date: 20100222
  Transmission Date: 20100710
  Serious: Yes (Hospitalization)
  Sender: FDA-Public Use
  Company Number: None

PATIENT
  Sex: Female
  Weight: 49.8957 kg

DRUGS (3)
  1. VISINE EYE DROPS [Suspect]
     Indication: FOREIGN BODY SENSATION IN EYES
     Dosage: SINGLE USE
     Dates: start: 20100117, end: 20100117
  2. GENERIC ADDERAL XL [Concomitant]
  3. GENERIC AMITRIPTYLINE [Concomitant]

REACTIONS (4)
  - BLEPHAROSPASM [None]
  - BLOOD PRESSURE SYSTOLIC INCREASED [None]
  - EYE PAIN [None]
  - HEART RATE INCREASED [None]
